FAERS Safety Report 9445751 (Version 1)
Quarter: 2013Q3

REPORT INFORMATION
  Report Type: Spontaneous
  Country: GB (occurrence: GB)
  Receive Date: 20130807
  Receipt Date: 20130807
  Transmission Date: 20140515
  Serious: Yes (Life-Threatening, Other)
  Sender: FDA-Public Use
  Company Number: GB-BRISTOL-MYERS SQUIBB COMPANY-19144617

PATIENT
  Age: 76 Year
  Sex: Male
  Weight: 76 kg

DRUGS (2)
  1. ELIQUIS [Suspect]
     Indication: ATRIAL FIBRILLATION
     Route: 048
     Dates: start: 20130321, end: 20130603
  2. OMEPRAZOLE [Concomitant]

REACTIONS (3)
  - Rectal haemorrhage [Recovered/Resolved]
  - Diverticulum [Recovered/Resolved]
  - Haemorrhoids [Recovered/Resolved]
